FAERS Safety Report 4715280-2 (Version None)
Quarter: 2005Q3

REPORT INFORMATION
  Report Type: 
  Country: None (occurrence: None)
  Receive Date: 20050715
  Receipt Date: 20050706
  Transmission Date: 20060218
  Serious: Yes (Hospitalization)
  Sender: FDA-Public Use
  Company Number: US-KINGPHARMUSA00001-K200500914

PATIENT
  Age: 74 Year
  Sex: Female

DRUGS (14)
  1. ALTACE [Suspect]
     Dosage: 5 MG, QD
     Route: 048
     Dates: start: 20050326, end: 20050327
  2. ALTACE [Suspect]
     Dosage: 5 MG, QD
     Route: 048
     Dates: start: 20050405, end: 20050405
  3. ALTACE [Suspect]
     Dosage: 10 MG, QD
     Route: 048
     Dates: start: 20050406
  4. CIPRAMIL /NET/ [Suspect]
     Dosage: 40 MG, QD
     Route: 048
     Dates: start: 20050308, end: 20050415
  5. NORVASC [Concomitant]
     Dosage: 10 MG, UNK
     Dates: start: 20050328
  6. ASS ^CT-ARZNEIMITTEL^ [Concomitant]
  7. CORVATON - SLOW RELEASE ^AVENTIS PHARMA^ [Concomitant]
     Dosage: 4 MG, UNK
     Dates: start: 20050326
  8. EUNERPAN [Concomitant]
     Dates: end: 20050418
  9. CONCOR [Concomitant]
     Dosage: UNK, BID
     Dates: start: 20050326, end: 20050327
  10. PANTOPRAZOLE SODIUM [Concomitant]
     Dosage: 40 MG, UNK
     Dates: start: 20050326, end: 20050401
  11. XANEF [Concomitant]
     Dosage: 15 MG, UNK
     Dates: start: 20050328
  12. ESIDRIX [Concomitant]
     Dosage: 25 MG, UNK
     Dates: start: 20050326
  13. KALINOR-BRAUSETABLETTEN [Concomitant]
     Dosage: 1 UNK, UNK
     Dates: start: 20050327, end: 20050331
  14. RANITIDIN ^ALIUD PHARMA^ [Concomitant]
     Dosage: 300 MG, UNK
     Dates: start: 20050402

REACTIONS (11)
  - ASTHENIA [None]
  - BLOOD OSMOLARITY DECREASED [None]
  - DEPRESSION [None]
  - FEELING ABNORMAL [None]
  - HEADACHE [None]
  - HYPONATRAEMIA [None]
  - OLIGURIA [None]
  - SYNCOPE [None]
  - URINE OSMOLARITY INCREASED [None]
  - URINE POTASSIUM INCREASED [None]
  - URINE SODIUM INCREASED [None]
